FAERS Safety Report 19476655 (Version 5)
Quarter: 2025Q1

REPORT INFORMATION
  Report Type: Spontaneous
  Country: US (occurrence: US)
  Receive Date: 20210630
  Receipt Date: 20250121
  Transmission Date: 20250409
  Serious: Yes (Other)
  Sender: ACCORD
  Company Number: US-ACCORD-219589

PATIENT
  Age: 42 Year
  Sex: Male
  Weight: 102.06 kg

DRUGS (4)
  1. ALLOPURINOL [Suspect]
     Active Substance: ALLOPURINOL
     Indication: Gout
     Route: 048
     Dates: start: 2019
  2. ATORVASTATIN [Suspect]
     Active Substance: ATORVASTATIN
     Indication: Blood cholesterol
     Route: 048
     Dates: start: 2019
  3. FEBUXOSTAT [Suspect]
     Active Substance: FEBUXOSTAT
     Indication: Product used for unknown indication
  4. PANTOPRAZOLE SODIUM [Concomitant]
     Active Substance: PANTOPRAZOLE SODIUM

REACTIONS (11)
  - Gastrointestinal haemorrhage [Unknown]
  - Chest pain [Unknown]
  - Renal disorder [Unknown]
  - Pulmonary mass [Unknown]
  - Arteriosclerosis [Unknown]
  - Haemoptysis [Unknown]
  - Palpitations [Unknown]
  - Pain in jaw [Unknown]
  - Nausea [Unknown]
  - Cerebrovascular accident [Unknown]
  - Stevens-Johnson syndrome [Unknown]
